FAERS Safety Report 18560407 (Version 2)
Quarter: 2020Q4

REPORT INFORMATION
  Report Type: Spontaneous
  Country: US (occurrence: US)
  Receive Date: 20201130
  Receipt Date: 20201210
  Transmission Date: 20210114
  Serious: No
  Sender: FDA-Public Use
  Company Number: US-ASTRAZENECA-2020SF54498

PATIENT
  Sex: Male
  Weight: 97.5 kg

DRUGS (3)
  1. BYDUREON BCISE [Suspect]
     Active Substance: EXENATIDE
     Indication: TYPE 2 DIABETES MELLITUS
     Route: 058
  2. ROSUVASTATIN CALCIUM. [Suspect]
     Active Substance: ROSUVASTATIN CALCIUM
     Indication: BLOOD CHOLESTEROL
     Dosage: 10.0MG UNKNOWN
     Route: 048
  3. JARDIANCE [Concomitant]
     Active Substance: EMPAGLIFLOZIN
     Indication: TYPE 2 DIABETES MELLITUS
     Dosage: 25 MG AND 10 MG TOGETHER
     Route: 048

REACTIONS (9)
  - Injection site mass [Unknown]
  - Product dose omission issue [Unknown]
  - Head discomfort [Unknown]
  - Abdominal pain [Unknown]
  - Injection site erythema [Unknown]
  - Visual impairment [Unknown]
  - Device leakage [Unknown]
  - Fatigue [Unknown]
  - Weight decreased [Unknown]
